FAERS Safety Report 20783979 (Version 1)
Quarter: 2022Q2

REPORT INFORMATION
  Report Type: Spontaneous
  Country: US (occurrence: US)
  Receive Date: 20220504
  Receipt Date: 20220504
  Transmission Date: 20220721
  Serious: No
  Sender: FDA-Public Use
  Company Number: US-ANIPHARMA-2021-US-015022

PATIENT
  Age: 81 Year
  Sex: Female
  Weight: 64.41 kg

DRUGS (4)
  1. CANDESARTAN CILEXETIL [Suspect]
     Active Substance: CANDESARTAN CILEXETIL
     Indication: Hypertension
     Route: 048
     Dates: start: 202105
  2. VITAMINS [Concomitant]
     Active Substance: VITAMINS
     Route: 065
  3. ALPHAGAN P [Concomitant]
     Active Substance: BRIMONIDINE TARTRATE
     Route: 065
  4. LATANOPROST [Concomitant]
     Active Substance: LATANOPROST
     Route: 065

REACTIONS (1)
  - Blood pressure fluctuation [Not Recovered/Not Resolved]

NARRATIVE: CASE EVENT DATE: 20210501
